FAERS Safety Report 23560744 (Version 1)
Quarter: 2024Q1

REPORT INFORMATION
  Report Type: Report from Study
  Country: US (occurrence: US)
  Receive Date: 20240223
  Receipt Date: 20240223
  Transmission Date: 20240409
  Serious: Yes (Other)
  Sender: FDA-Public Use
  Company Number: US-PFIZER INC-PV202400025012

PATIENT
  Sex: Male

DRUGS (4)
  1. LORLATINIB [Suspect]
     Active Substance: LORLATINIB
     Dosage: 75 MG
     Dates: start: 20221011, end: 2022
  2. LORLATINIB [Suspect]
     Active Substance: LORLATINIB
     Dosage: 75 MG
     Dates: start: 2022, end: 2022
  3. LORLATINIB [Suspect]
     Active Substance: LORLATINIB
     Dosage: 50 MG
     Dates: start: 2022, end: 2022
  4. LORLATINIB [Suspect]
     Active Substance: LORLATINIB
     Dosage: 75 MG
     Dates: start: 2022, end: 20221209

REACTIONS (4)
  - Bradycardia [Unknown]
  - Decreased appetite [Unknown]
  - Fatigue [Unknown]
  - Weight increased [Unknown]

NARRATIVE: CASE EVENT DATE: 20220101
